FAERS Safety Report 13196828 (Version 3)
Quarter: 2017Q2

REPORT INFORMATION
  Report Type: Report from Study
  Country: CA (occurrence: CA)
  Receive Date: 20170208
  Receipt Date: 20170406
  Transmission Date: 20170830
  Serious: Yes (Other)
  Sender: FDA-Public Use
  Company Number: CA-GLAXOSMITHKLINE-CA2017GSK010977

PATIENT
  Age: 36 Year
  Sex: Female

DRUGS (17)
  1. COSENTYX [Suspect]
     Active Substance: SECUKINUMAB
     Dosage: 150 MG, QMO
     Route: 058
     Dates: start: 20170228
  2. DICLOFENAC SODIUM. [Suspect]
     Active Substance: DICLOFENAC SODIUM
     Indication: PRODUCT USED FOR UNKNOWN INDICATION
     Dosage: UNK
     Route: 065
  3. COSENTYX [Suspect]
     Active Substance: SECUKINUMAB
     Dosage: 150 MG, WE
     Route: 058
     Dates: start: 20170210
  4. NAPROXEN. [Concomitant]
     Active Substance: NAPROXEN
     Dosage: 200 MG, UNK
     Dates: start: 201602
  5. COSENTYX [Suspect]
     Active Substance: SECUKINUMAB
     Indication: PSORIATIC ARTHROPATHY
     Dosage: 150 MG, WE
     Route: 058
     Dates: start: 20170113
  6. FOLIC ACID. [Concomitant]
     Active Substance: FOLIC ACID
     Dosage: 5 MG, UNK
  7. SULINDAC. [Concomitant]
     Active Substance: SULINDAC
  8. AVIANE [Concomitant]
     Active Substance: ETHINYL ESTRADIOL\LEVONORGESTREL
  9. BECLO [Concomitant]
     Dosage: 50 UG, UNK
  10. METHOTREXATE. [Suspect]
     Active Substance: METHOTREXATE
     Indication: PRODUCT USED FOR UNKNOWN INDICATION
     Dosage: 7.5 MG, UNK
     Route: 058
     Dates: start: 2012
  11. RAMIPRIL/HIDROCLOROTIAZIDA [Concomitant]
     Dosage: UNK
  12. COSENTYX [Suspect]
     Active Substance: SECUKINUMAB
     Indication: PSORIASIS
     Dosage: 150 MG, WE
     Route: 058
     Dates: start: 20170120, end: 20170120
  13. SULFASALAZINE. [Concomitant]
     Active Substance: SULFASALAZINE
  14. LAX-A-DAY [Concomitant]
  15. PERCOCET [Concomitant]
     Active Substance: ACETAMINOPHEN\OXYCODONE HYDROCHLORIDE
  16. COSENTYX [Suspect]
     Active Substance: SECUKINUMAB
     Dosage: 150 MG, WE
     Route: 058
     Dates: start: 20170221
  17. CELEBREX [Concomitant]
     Active Substance: CELECOXIB
     Dosage: 200 MG, UNK
     Dates: start: 201602

REACTIONS (14)
  - Myalgia [Unknown]
  - Dyspnoea [Unknown]
  - Musculoskeletal stiffness [Unknown]
  - Hangover [Unknown]
  - Musculoskeletal chest pain [Unknown]
  - Psoriatic arthropathy [Unknown]
  - Hypersensitivity [Unknown]
  - Psoriasis [Unknown]
  - Pain [Not Recovered/Not Resolved]
  - Fatigue [Unknown]
  - Pneumonia [Recovered/Resolved]
  - Pain in extremity [Unknown]
  - Musculoskeletal discomfort [Unknown]
  - Neck pain [Unknown]

NARRATIVE: CASE EVENT DATE: 201701
